FAERS Safety Report 7992150-8 (Version None)
Quarter: 2011Q4

REPORT INFORMATION
  Report Type: 
  Country: None (occurrence: None)
  Receive Date: 20111219
  Receipt Date: 20110908
  Transmission Date: 20120403
  Serious: No
  Sender: FDA-Public Use
  Company Number: US-ASTRAZENECA-2011SE54316

PATIENT
  Sex: Female

DRUGS (2)
  1. CRESTOR [Suspect]
     Route: 048
  2. NORVASC [Interacting]
     Route: 065

REACTIONS (2)
  - POTENTIATING DRUG INTERACTION [None]
  - WRONG TECHNIQUE IN DRUG USAGE PROCESS [None]
